FAERS Safety Report 15154307 (Version 1)
Quarter: 2018Q3

REPORT INFORMATION
  Report Type: Spontaneous
  Country: IT (occurrence: IT)
  Receive Date: 20180717
  Receipt Date: 20180717
  Transmission Date: 20181010
  Serious: Yes (Other)
  Sender: FDA-Public Use
  Company Number: IT-PFIZER INC-2018286646

PATIENT
  Age: 54 Year
  Sex: Female

DRUGS (6)
  1. AUGMENTIN [Concomitant]
     Active Substance: AMOXICILLIN\CLAVULANATE POTASSIUM
     Dosage: UNK
  2. PANTORC [Concomitant]
     Active Substance: PANTOPRAZOLE SODIUM
     Dosage: UNK
  3. TOPAMAX [Concomitant]
     Active Substance: TOPIRAMATE
     Dosage: UNK
  4. CLEXANE [Concomitant]
     Active Substance: ENOXAPARIN SODIUM
     Dosage: UNK
  5. LYRICA [Suspect]
     Active Substance: PREGABALIN
     Indication: EPILEPSY
     Dosage: 1 DF, 1X/DAY
     Route: 048
     Dates: start: 20170616
  6. MIRAPEXIN [Concomitant]
     Active Substance: PRAMIPEXOLE
     Dosage: UNK

REACTIONS (1)
  - Hypokalaemia [Recovered/Resolved]

NARRATIVE: CASE EVENT DATE: 20180610
